FAERS Safety Report 6848860-9 (Version None)
Quarter: 2010Q3

REPORT INFORMATION
  Report Type: 
  Country: None (occurrence: None)
  Receive Date: 20100716
  Receipt Date: 20070927
  Transmission Date: 20110219
  Serious: Yes (Other)
  Sender: FDA-Public Use
  Company Number: US-PFIZER INC-2007076156

PATIENT
  Sex: Female

DRUGS (11)
  1. CHANTIX [Suspect]
     Indication: SMOKING CESSATION THERAPY
     Route: 048
     Dates: start: 20070722
  2. MIRAPEX [Concomitant]
  3. BUSPAR [Concomitant]
  4. XANAX [Concomitant]
  5. BACLOFEN [Concomitant]
  6. VERAPAMIL [Concomitant]
  7. EFFEXOR [Concomitant]
  8. VITAMINS [Concomitant]
  9. TYLENOL [Concomitant]
  10. TYLENOL W/ CODEINE NO. 3 [Concomitant]
  11. ANALGESICS [Concomitant]

REACTIONS (6)
  - ABNORMAL DREAMS [None]
  - FLATULENCE [None]
  - HOT FLUSH [None]
  - HYPERHIDROSIS [None]
  - SYNCOPE [None]
  - WEIGHT INCREASED [None]
